FAERS Safety Report 15926151 (Version 2)
Quarter: 2019Q1

REPORT INFORMATION
  Report Type: Spontaneous
  Country: US (occurrence: US)
  Receive Date: 20190205
  Receipt Date: 20190219
  Transmission Date: 20190417
  Serious: No
  Sender: FDA-Public Use
  Company Number: US-ALLERGAN-1831828US

PATIENT
  Sex: Female

DRUGS (5)
  1. ADVIL [Concomitant]
     Active Substance: IBUPROFEN
     Indication: MIGRAINE
     Dosage: UNK, PRN
     Route: 065
  2. BOTOX COSMETIC [Suspect]
     Active Substance: ONABOTULINUMTOXINA
     Indication: SKIN WRINKLING
     Dosage: ACTUAL: 10 UNITS TO GLABELLA AND 8 UNITS TO FRONTALIS
     Route: 030
     Dates: start: 20180501, end: 20180501
  3. WELLBUTRIN [Concomitant]
     Active Substance: BUPROPION HYDROCHLORIDE
     Indication: EX-TOBACCO USER
     Dosage: UNK
     Route: 065
  4. BOTOX COSMETIC [Suspect]
     Active Substance: ONABOTULINUMTOXINA
     Indication: SKIN WRINKLING
     Dosage: ACTUAL: 10 UNITS TO GLABELLA AND 6 UNITS TO FRONTALIS
     Route: 030
     Dates: start: 20180328, end: 20180328
  5. BOTOX COSMETIC [Suspect]
     Active Substance: ONABOTULINUMTOXINA
     Indication: SKIN WRINKLING
     Dosage: ACTUAL: 20 UNITS TO GLABELLA AND 14 UNITS TO FRONTALIS
     Route: 030
     Dates: start: 20180320, end: 20180320

REACTIONS (2)
  - Product preparation error [Unknown]
  - Drug ineffective [Unknown]
